FAERS Safety Report 9731165 (Version 1)
Quarter: 2013Q4

REPORT INFORMATION
  Report Type: Other
  Country: BR (occurrence: BR)
  Receive Date: 20131203
  Receipt Date: 20131203
  Transmission Date: 20140711
  Serious: Yes (Hospitalization, Disabling)
  Sender: FDA-Public Use
  Company Number: BR-SHIRE-ALL1-2013-08285

PATIENT
  Age: 10 Year
  Sex: Male
  Weight: 33 kg

DRUGS (2)
  1. ELAPRASE [Suspect]
     Indication: MUCOPOLYSACCHARIDOSIS II
     Dosage: 3 DF, 1X/2WKS
     Route: 041
  2. ELAPRASE [Suspect]
     Dosage: 2 DF, 1X/2WKS
     Route: 041

REACTIONS (2)
  - Cardiac arrest [Recovered/Resolved with Sequelae]
  - Pyrexia [Recovering/Resolving]
